FAERS Safety Report 7750513-X (Version None)
Quarter: 2011Q3

REPORT INFORMATION
  Report Type: 
  Country: None (occurrence: None)
  Receive Date: 20110914
  Receipt Date: 20110830
  Transmission Date: 20111222
  Serious: Yes (Other)
  Sender: FDA-Public Use
  Company Number: US-JNJFOC-2009029952

PATIENT
  Age: 58 Year
  Sex: Male
  Weight: 99.8 kg

DRUGS (2)
  1. BENADRYL [Suspect]
     Route: 048
  2. BENADRYL [Suspect]
     Indication: HYPERSENSITIVITY
     Dosage: DAILY DOSE TEXT: 4 TO 6 PER DAY
     Route: 048

REACTIONS (4)
  - LIP SWELLING [None]
  - MUSCLE SPASMS [None]
  - PARAESTHESIA ORAL [None]
  - PHARYNGEAL OEDEMA [None]
